FAERS Safety Report 25099935 (Version 1)
Quarter: 2025Q1

REPORT INFORMATION
  Report Type: Spontaneous
  Country: US (occurrence: US)
  Receive Date: 20250320
  Receipt Date: 20250320
  Transmission Date: 20250409
  Serious: No
  Sender: REGENERON
  Company Number: US-REGENERON PHARMACEUTICALS, INC.-2025-019739

PATIENT
  Sex: Male

DRUGS (4)
  1. EYLEA HD [Suspect]
     Active Substance: AFLIBERCEPT
     Indication: Macular oedema
  2. EYLEA HD [Suspect]
     Active Substance: AFLIBERCEPT
     Indication: Retinal vein occlusion
  3. VABYSMO [Concomitant]
     Active Substance: FARICIMAB-SVOA
     Indication: Macular oedema
  4. VABYSMO [Concomitant]
     Active Substance: FARICIMAB-SVOA
     Indication: Retinal vein occlusion

REACTIONS (1)
  - Off label use [Unknown]
